FAERS Safety Report 18840872 (Version 4)
Quarter: 2021Q2

REPORT INFORMATION
  Report Type: Report from Study
  Country: US (occurrence: US)
  Receive Date: 20210204
  Receipt Date: 20210421
  Transmission Date: 20210717
  Serious: Yes (Hospitalization, Other)
  Sender: FDA-Public Use
  Company Number: US-GILEAD-2021-0511762

PATIENT
  Age: 57 Year
  Sex: Male
  Weight: 97.1 kg

DRUGS (32)
  1. SILDENAFIL. [Concomitant]
     Active Substance: SILDENAFIL
  2. SPIRONOLACTONE. [Concomitant]
     Active Substance: SPIRONOLACTONE
  3. CALCIUM CITRATE WITH VITAMIN D [Concomitant]
     Active Substance: CALCIUM CITRATE\VITAMIN D
  4. ORENITRAM [Suspect]
     Active Substance: TREPROSTINIL
     Dosage: 3.25 MG, TID
     Route: 048
  5. HYDROXYCHLOROQUINE [Concomitant]
     Active Substance: HYDROXYCHLOROQUINE
  6. PROBIOTIC ACIDOPHILUS [LACTOBACILLUS ACIDOPHILUS] [Concomitant]
  7. POTASSIUM CHLORIDE. [Concomitant]
     Active Substance: POTASSIUM CHLORIDE
  8. RITUXAN [Concomitant]
     Active Substance: RITUXIMAB
  9. AMBRISENTAN [Suspect]
     Active Substance: AMBRISENTAN
     Indication: PULMONARY ARTERIAL HYPERTENSION
     Dosage: 10 MG, QD
     Route: 048
     Dates: start: 20131126
  10. ORENITRAM [Suspect]
     Active Substance: TREPROSTINIL
     Dosage: 0.125 MG
     Route: 048
     Dates: start: 20190716
  11. ORENITRAM [Suspect]
     Active Substance: TREPROSTINIL
     Dosage: 1 MG
     Route: 048
     Dates: start: 20190716
  12. ORENITRAM [Suspect]
     Active Substance: TREPROSTINIL
     Dosage: 2.5 MG
     Route: 048
     Dates: start: 20190716
  13. AMBIEN [Concomitant]
     Active Substance: ZOLPIDEM TARTRATE
  14. FOLIC ACID. [Concomitant]
     Active Substance: FOLIC ACID
  15. LISINOPRIL AND HYDROCHLOROTHIAZIDE [Concomitant]
     Active Substance: HYDROCHLOROTHIAZIDE\LISINOPRIL
  16. MELATONIN [Concomitant]
     Active Substance: MELATONIN
  17. ORENITRAM [Suspect]
     Active Substance: TREPROSTINIL
     Indication: PRODUCT USED FOR UNKNOWN INDICATION
     Dosage: UNK
     Route: 048
     Dates: start: 201804, end: 20180622
  18. ORENITRAM [Suspect]
     Active Substance: TREPROSTINIL
     Dosage: 3.75 MG, TID
     Route: 048
  19. EPINEPHRINE. [Concomitant]
     Active Substance: EPINEPHRINE
  20. TREPROSTINIL DIOLAMIN [Concomitant]
     Active Substance: TREPROSTINIL DIOLAMINE
  21. VITAMIN B6 [Concomitant]
     Active Substance: PYRIDOXINE HYDROCHLORIDE
  22. ORENITRAM [Suspect]
     Active Substance: TREPROSTINIL
     Dosage: 0.25 MG
     Route: 048
     Dates: start: 20190716
  23. ORENITRAM [Suspect]
     Active Substance: TREPROSTINIL
     Dosage: 3 MG, TID
     Route: 048
  24. METHOTREXATE. [Concomitant]
     Active Substance: METHOTREXATE
  25. FAMOTIDINE. [Concomitant]
     Active Substance: FAMOTIDINE
  26. DIGOXIN. [Concomitant]
     Active Substance: DIGOXIN
  27. ESCITALOPRAM [Concomitant]
     Active Substance: ESCITALOPRAM OXALATE
  28. FUROSEMIDE. [Concomitant]
     Active Substance: FUROSEMIDE
  29. AZATHIOPRINE. [Concomitant]
     Active Substance: AZATHIOPRINE
  30. REVATIO [Concomitant]
     Active Substance: SILDENAFIL CITRATE
  31. UPTRAVI [Concomitant]
     Active Substance: SELEXIPAG
  32. PREDNISONE. [Concomitant]
     Active Substance: PREDNISONE

REACTIONS (4)
  - COVID-19 [Unknown]
  - Abdominal discomfort [Recovered/Resolved]
  - Localised infection [Unknown]
  - Pneumonia [Unknown]
